FAERS Safety Report 6253532-8 (Version None)
Quarter: 2009Q2

REPORT INFORMATION
  Report Type: 
  Country: None (occurrence: None)
  Receive Date: 20090629
  Receipt Date: 20090629
  Transmission Date: 20091009
  Serious: Yes (Hospitalization, Other)
  Sender: FDA-Public Use
  Company Number: None

PATIENT
  Age: 22 Year
  Sex: Female
  Weight: 68.0396 kg

DRUGS (4)
  1. IMPLANON [Suspect]
     Indication: CONTRACEPTION
     Dosage: 68 MG EVERYDAY - UNK
     Dates: start: 20090521, end: 20090617
  2. PROZAC IRON PILLS [Concomitant]
  3. PRENATAL [Concomitant]
  4. FOLIC ACID [Concomitant]

REACTIONS (3)
  - CONVULSION [None]
  - HEADACHE [None]
  - SYNCOPE [None]
